FAERS Safety Report 9536429 (Version 3)
Quarter: 2013Q4

REPORT INFORMATION
  Report Type: Spontaneous
  Country: US (occurrence: US)
  Receive Date: 20130919
  Receipt Date: 20131213
  Transmission Date: 20140711
  Serious: Yes (Other)
  Sender: FDA-Public Use
  Company Number: US-JNJFOC-20130907452

PATIENT
  Age: 52 Year
  Sex: Female
  Weight: 112.95 kg

DRUGS (8)
  1. REMICADE [Suspect]
     Indication: PSORIATIC ARTHROPATHY
     Route: 042
     Dates: start: 20121219
  2. REMICADE [Suspect]
     Indication: PSORIATIC ARTHROPATHY
     Route: 042
     Dates: start: 20130103, end: 20130103
  3. REMICADE [Suspect]
     Indication: PSORIATIC ARTHROPATHY
     Route: 042
     Dates: start: 20100929, end: 20120111
  4. REMICADE [Suspect]
     Indication: PSORIATIC ARTHROPATHY
     Route: 042
     Dates: start: 20130531, end: 20130531
  5. PREDNISONE [Concomitant]
     Indication: PREMEDICATION
     Dosage: DAY BEFORE AND THE MORNING OF INFLIXIMAB INFUSION, ONE HOUR PRIOR TO THE INFUSION
     Route: 048
     Dates: start: 20130102
  6. PREDNISONE [Concomitant]
     Indication: PREMEDICATION
     Dosage: DAY BEFORE AND THE MORNING OF INFLIXIMAB INFUSION, ONE HOUR PRIOR TO THE INFUSION
     Route: 048
     Dates: start: 20130103
  7. CLARITIN [Concomitant]
     Indication: PREMEDICATION
     Dosage: MORNING OF INFLIXIMAB INFUSION
     Route: 048
     Dates: start: 20130103
  8. TYLENOL [Concomitant]
     Indication: PREMEDICATION
     Dosage: ONE HOUR PRIOR TO INFLIXIMAB INFUSION
     Route: 048
     Dates: start: 20130103

REACTIONS (11)
  - Splenomegaly [Unknown]
  - Type III immune complex mediated reaction [Recovered/Resolved]
  - Infusion related reaction [Recovered/Resolved]
  - Hypertension [Recovered/Resolved]
  - Heart rate increased [Recovered/Resolved]
  - Palpitations [Recovered/Resolved]
  - Headache [Recovered/Resolved]
  - Back pain [Recovered/Resolved]
  - Pruritus [Recovered/Resolved]
  - Rash [Recovered/Resolved]
  - Flushing [Recovered/Resolved]
